FAERS Safety Report 9619403 (Version 2)
Quarter: 2013Q4

REPORT INFORMATION
  Report Type: Spontaneous
  Country: GB (occurrence: GB)
  Receive Date: 20131014
  Receipt Date: 20131227
  Transmission Date: 20140711
  Serious: Yes (Death, Other)
  Sender: FDA-Public Use
  Company Number: PHHY2013GB110398

PATIENT
  Age: 89 Year
  Sex: Male
  Weight: 73 kg

DRUGS (15)
  1. METHOTREXATE [Suspect]
     Indication: RHEUMATOID ARTHRITIS
     Dosage: 20 MG, QW
     Route: 048
  2. PERINDOPRIL [Concomitant]
  3. OMEPRAZOLE [Concomitant]
  4. BENDROFLUMETHIAZIDE [Concomitant]
  5. VENLAFAXIN [Concomitant]
  6. PREDNISOLON [Concomitant]
  7. CALCICHEW [Concomitant]
  8. DIAMOX [Concomitant]
  9. FOLIC ACID [Concomitant]
  10. ALENDRONIC ACID [Concomitant]
  11. IBUPROFENE [Concomitant]
  12. AMLODIPINE [Concomitant]
  13. DOMPERIDONE [Concomitant]
  14. TAMSULOSIN [Concomitant]
  15. METOCLOPRAMID [Concomitant]

REACTIONS (5)
  - Neutropenic sepsis [Fatal]
  - Mouth ulceration [Not Recovered/Not Resolved]
  - Oesophageal ulcer [Not Recovered/Not Resolved]
  - Neutropenia [Recovered/Resolved]
  - Drug prescribing error [Unknown]
